FAERS Safety Report 8006059-7 (Version None)
Quarter: 2011Q4

REPORT INFORMATION
  Report Type: 
  Country: None (occurrence: None)
  Receive Date: 20111226
  Receipt Date: 20111219
  Transmission Date: 20120403
  Serious: Yes (Other)
  Sender: FDA-Public Use
  Company Number: CH-BIOGENIDEC-2011BI048312

PATIENT
  Age: 32 Year
  Sex: Female

DRUGS (2)
  1. TYSABRI [Suspect]
     Indication: MULTIPLE SCLEROSIS
     Route: 058
     Dates: start: 20110818, end: 20111101
  2. TYSABRI [Suspect]
     Route: 058
     Dates: start: 20111201

REACTIONS (1)
  - ABORTION SPONTANEOUS [None]
